FAERS Safety Report 8883360 (Version 1)
Quarter: 2012Q4

REPORT INFORMATION
  Report Type: 
  Country: US (occurrence: US)
  Receive Date: 20121102
  Receipt Date: 20121102
  Transmission Date: 20130627
  Serious: Yes (Hospitalization, Disabling, Other)
  Sender: FDA-Public Use
  Company Number: US-009507513-1107USA03700

PATIENT

DRUGS (19)
  1. FOSAMAX [Suspect]
     Indication: OSTEOPOROSIS
     Dosage: 70 mg, QW
     Route: 048
     Dates: start: 20010926, end: 200803
  2. MK-9354 [Concomitant]
     Indication: HEART RATE ABNORMAL
     Dosage: 240 mg, bid
     Dates: start: 2000
  3. SINGULAIR [Concomitant]
     Indication: THYROID DISORDER
     Dosage: 10 mg, QPM
     Dates: start: 2000
  4. GUAIFENESIN [Concomitant]
     Indication: GASTROOESOPHAGEAL REFLUX DISEASE
     Dosage: 200-400
     Dates: start: 2000
  5. PRILOSEC [Concomitant]
     Indication: GASTROOESOPHAGEAL REFLUX DISEASE
     Dosage: 20 mg, UNK
     Dates: start: 2001
  6. FOSAMAX [Suspect]
     Indication: OSTEOPOROSIS
     Dosage: 70 mg, QW
     Route: 048
     Dates: start: 200803, end: 201005
  7. CALCIUM (UNSPECIFIED) [Concomitant]
  8. ZANTAC [Concomitant]
     Dosage: 150 mg, bid
     Dates: start: 19990917
  9. MK-0954 [Concomitant]
  10. MK-9378 [Concomitant]
  11. CASODEX [Concomitant]
     Dates: start: 19990119
  12. ZOLADEX [Concomitant]
     Dates: start: 19990119
  13. COMBIVENT [Concomitant]
     Route: 055
  14. FLUNISOLIDE [Concomitant]
     Dosage: 250 ?g, UNK
     Route: 055
  15. ATROVENT [Concomitant]
  16. METICORTEN [Concomitant]
  17. FOSINOPRIL SODIUM [Concomitant]
     Dosage: 5 mg, qd
     Route: 048
  18. SYNTHROID [Concomitant]
     Dosage: UNK UNK, qd
     Route: 048
  19. FOSAMAX [Suspect]
     Dosage: UNK mg, UNK
     Route: 048
     Dates: start: 20030901

REACTIONS (68)
  - Rib fracture [Unknown]
  - Pneumonia [Unknown]
  - Pulmonary embolism [Recovering/Resolving]
  - Umbilical hernia [Unknown]
  - Pneumonia [Unknown]
  - Pneumonia [Unknown]
  - Pneumonia [Recovering/Resolving]
  - Rectal haemorrhage [Recovered/Resolved]
  - Pneumonia [Unknown]
  - Infectious pleural effusion [Unknown]
  - Pulmonary mass [Unknown]
  - Lobar pneumonia [Unknown]
  - Chronic obstructive pulmonary disease [Unknown]
  - Chronic obstructive pulmonary disease [Unknown]
  - Syncope [Unknown]
  - Diverticulitis [Unknown]
  - Laryngeal cancer [Unknown]
  - Supraventricular tachycardia [Unknown]
  - Hernia [Unknown]
  - Atrial fibrillation [Unknown]
  - Incisional hernia [Unknown]
  - Atrial flutter [Unknown]
  - Gastroenteritis [Recovered/Resolved]
  - Osteonecrosis of jaw [Not Recovered/Not Resolved]
  - Iron deficiency anaemia [Unknown]
  - Fungal infection [Unknown]
  - Rib fracture [Recovered/Resolved]
  - Pleural disorder [Unknown]
  - Atelectasis [Recovering/Resolving]
  - Pulmonary granuloma [Unknown]
  - Diastasis recti abdominis [Unknown]
  - Weight decreased [Unknown]
  - Decreased appetite [Unknown]
  - Stomatitis [Unknown]
  - Hyperlipidaemia [Unknown]
  - Haemorrhoids [Unknown]
  - Hyperhidrosis [Unknown]
  - Arthritis [Unknown]
  - Immune system disorder [Unknown]
  - Pneumonia [Unknown]
  - Sleep apnoea syndrome [Unknown]
  - Cholecystitis infective [Unknown]
  - Liver function test abnormal [Unknown]
  - Osteoarthritis [Unknown]
  - Vitamin D deficiency [Unknown]
  - Heart rate irregular [Unknown]
  - Supraventricular tachycardia [Unknown]
  - Peripheral arterial occlusive disease [Unknown]
  - Upper gastrointestinal haemorrhage [Unknown]
  - Cataract [Unknown]
  - Large intestine polyp [Unknown]
  - Refraction disorder [Unknown]
  - Presbyopia [Unknown]
  - Open angle glaucoma [Unknown]
  - Atrial tachycardia [Unknown]
  - Organic erectile dysfunction [Unknown]
  - Cholelithiasis [Unknown]
  - Breast pain [Unknown]
  - Arteriosclerosis coronary artery [Unknown]
  - Aortic calcification [Unknown]
  - Tooth abscess [Unknown]
  - Abdominal hernia [Unknown]
  - Lung disorder [Unknown]
  - Chronic obstructive pulmonary disease [Unknown]
  - Nausea [Unknown]
  - Dizziness [Unknown]
  - Diarrhoea [Unknown]
  - Abdominal pain [Unknown]
